FAERS Safety Report 6386900-4 (Version None)
Quarter: 2009Q4

REPORT INFORMATION
  Report Type: 
  Country: None (occurrence: None)
  Receive Date: 20091001
  Receipt Date: 20091001
  Transmission Date: 20100525
  Serious: No
  Sender: FDA-Public Use
  Company Number: None

PATIENT
  Age: 48 Year
  Sex: Male
  Weight: 92 kg

DRUGS (10)
  1. DILAUDID [Suspect]
     Indication: PAIN
     Dosage: 0.5MG Q4H PRN IV
     Route: 042
     Dates: start: 20090821, end: 20090824
  2. ATIVAN [Concomitant]
  3. DIPRIVAN [Concomitant]
  4. DOCUSATE [Concomitant]
  5. LEXAPRO [Concomitant]
  6. NYSTATIN [Concomitant]
  7. NEXIUM [Concomitant]
  8. OXACILLIN [Concomitant]
  9. PERCOCET [Concomitant]
  10. OXANDRIN [Concomitant]

REACTIONS (1)
  - RASH GENERALISED [None]
